FAERS Safety Report 7681785-8 (Version None)
Quarter: 2011Q3

REPORT INFORMATION
  Report Type: 
  Country: None (occurrence: None)
  Receive Date: 20110812
  Receipt Date: 20110803
  Transmission Date: 20111222
  Serious: Yes (Other)
  Sender: FDA-Public Use
  Company Number: US-ASTRAZENECA-2010SE48196

PATIENT
  Age: 71 Year
  Sex: Female

DRUGS (3)
  1. NEXIUM [Suspect]
     Route: 048
  2. NEXIUM [Suspect]
     Dosage: 2-3 CAPSULES
     Route: 048
  3. NEXIUM [Suspect]
     Route: 048

REACTIONS (8)
  - FALL [None]
  - INCORRECT DOSE ADMINISTERED [None]
  - WRIST FRACTURE [None]
  - MIDDLE INSOMNIA [None]
  - UPPER LIMB FRACTURE [None]
  - DYSPEPSIA [None]
  - GASTROOESOPHAGEAL REFLUX DISEASE [None]
  - DRUG DOSE OMISSION [None]
